FAERS Safety Report 17757703 (Version 3)
Quarter: 2020Q2

REPORT INFORMATION
  Report Type: Spontaneous
  Country: DE (occurrence: DE)
  Receive Date: 20200507
  Receipt Date: 20200515
  Transmission Date: 20200714
  Serious: Yes (Other)
  Sender: FDA-Public Use
  Company Number: DE-ASTRAZENECA-2020SE60039

PATIENT
  Sex: Female

DRUGS (6)
  1. SYMBICORT [Concomitant]
     Active Substance: BUDESONIDE\FORMOTEROL FUMARATE DIHYDRATE
     Dosage: 320 / 9; TWO TIMES A DAY
     Route: 055
  2. PREDNISOLON [Concomitant]
     Active Substance: PREDNISOLONE
     Route: 065
  3. FASENRA [Suspect]
     Active Substance: BENRALIZUMAB
     Indication: ASTHMA
     Route: 058
     Dates: start: 201909, end: 202001
  4. BUDESONID [Concomitant]
     Active Substance: BUDESONIDE
     Route: 065
  5. BERODUAL SPIRIVA RESP [Concomitant]
     Dosage: 2.5 UG (2-0-0)
     Route: 065
  6. CORTISONE [Concomitant]
     Active Substance: CORTISONE

REACTIONS (10)
  - Asthma [Not Recovered/Not Resolved]
  - Musculoskeletal discomfort [Not Recovered/Not Resolved]
  - Bronchial disorder [Unknown]
  - Chest discomfort [Unknown]
  - Headache [Unknown]
  - Drug ineffective [Unknown]
  - Nausea [Not Recovered/Not Resolved]
  - Myalgia [Not Recovered/Not Resolved]
  - Cystitis [Not Recovered/Not Resolved]
  - Rash [Unknown]
